FAERS Safety Report 10236459 (Version 4)
Quarter: 2014Q4

REPORT INFORMATION
  Report Type: Spontaneous
  Country: IT (occurrence: IT)
  Receive Date: 20140613
  Receipt Date: 20141007
  Transmission Date: 20150528
  Serious: Yes (Other)
  Sender: FDA-Public Use
  Company Number: IT-ABBVIE-14P-083-1247206-00

PATIENT
  Age: 10 Year
  Sex: Female
  Weight: 36 kg

DRUGS (1)
  1. MACLADIN [Suspect]
     Active Substance: CLARITHROMYCIN
     Indication: MYCOPLASMA INFECTION
     Dosage: 500 MILLIGRAM; FORM STRENGTH: 250 MG/5 ML
     Route: 048
     Dates: start: 20140503, end: 20140507

REACTIONS (5)
  - Angioedema [Recovered/Resolved]
  - Abdominal pain [Recovered/Resolved]
  - Vomiting [Recovered/Resolved]
  - Urticaria [Recovered/Resolved]
  - Sensation of foreign body [Recovered/Resolved]

NARRATIVE: CASE EVENT DATE: 20140507
